FAERS Safety Report 9702033 (Version 1)
Quarter: 2013Q4

REPORT INFORMATION
  Report Type: Spontaneous
  Country: IT (occurrence: None)
  Receive Date: 20131120
  Receipt Date: 20131120
  Transmission Date: 20140711
  Serious: Yes (Hospitalization)
  Sender: FDA-Public Use
  Company Number: 2013AP009732

PATIENT
  Age: 40 Year
  Sex: Female

DRUGS (5)
  1. VENLAFAXINE HYDROCHLORIDE (VENLAFAXINE HYDROCHLORIDE) [Suspect]
     Dosage: UNKNOWN
     Dates: start: 20130917, end: 20130917
  2. ALPRAZOLAM (ALPRAZOLAM) [Suspect]
     Dates: start: 20130917, end: 20130917
  3. BUPROPION HYDROCHLORIDE [Suspect]
     Dates: start: 20130917, end: 20130917
  4. VALPROATE SODIUM (VALPROATE SODIUM) [Suspect]
     Dates: start: 20130917, end: 20130917
  5. CARBOLITHIUM [Suspect]
     Dosage: 150 MG; CAP_HARD; UNKNOWN
     Dates: start: 20130917, end: 20130917

REACTIONS (6)
  - Sopor [None]
  - Agitation [None]
  - Confusional state [None]
  - Drug abuse [None]
  - Alanine aminotransferase increased [None]
  - Aspartate aminotransferase increased [None]
